FAERS Safety Report 4497727-2 (Version None)
Quarter: 2004Q4

REPORT INFORMATION
  Report Type: 
  Country: None (occurrence: None)
  Receive Date: 20041104
  Receipt Date: 20041021
  Transmission Date: 20050328
  Serious: Yes (Death, Congenital Anomaly)
  Sender: FDA-Public Use
  Company Number: 2004-UK-00595UK

PATIENT
  Sex: 0

DRUGS (2)
  1. NEVIRAPINE (00015/0215/A) (NEVIRAPINE) (TA) [Suspect]
     Indication: HIV INFECTION
     Dosage: 400 MG (200 MG)
     Route: 015
     Dates: start: 20040122
  2. DIDANOSINE [Suspect]
     Indication: HIV INFECTION
     Dosage: 400 MG
     Route: 015
     Dates: start: 20040122

REACTIONS (4)
  - CONGENITAL CENTRAL NERVOUS SYSTEM ANOMALY [None]
  - DRUG EXPOSURE DURING PREGNANCY [None]
  - INTRA-UTERINE DEATH [None]
  - PULMONARY HYPOPLASIA [None]
